FAERS Safety Report 12174508 (Version 3)
Quarter: 2016Q2

REPORT INFORMATION
  Report Type: Spontaneous
  Country: CA (occurrence: CA)
  Receive Date: 20160312
  Receipt Date: 20160516
  Transmission Date: 20160815
  Serious: Yes (Other)
  Sender: FDA-Public Use
  Company Number: CA-AUROBINDO-AUR-APL-2016-03296

PATIENT

DRUGS (7)
  1. BUDESONIDE. [Suspect]
     Active Substance: BUDESONIDE
     Indication: ASTHMA
     Dosage: 200 ?G, UNK
  2. CALCIUM [Concomitant]
     Active Substance: CALCIUM
     Indication: SUPPLEMENTATION THERAPY
     Dosage: 500 MG, UNK
  3. ESTRADIOL. [Concomitant]
     Active Substance: ESTRADIOL
     Indication: POLYCYSTIC OVARIES
     Dosage: UNK
     Route: 062
     Dates: start: 1996
  4. VITAMIN D                          /00107901/ [Concomitant]
     Active Substance: ERGOCALCIFEROL
     Indication: SUPPLEMENTATION THERAPY
     Dosage: 1000 IU, UNK
  5. FORMOTEROL FUMARATE DIHYDRATE [Suspect]
     Active Substance: FORMOTEROL FUMARATE DIHYDRATE
     Indication: ASTHMA
     Dosage: 2 DOSES
     Route: 065
  6. ALENDRONIC ACID 70 [Suspect]
     Active Substance: ALENDRONIC ACID
     Indication: BONE DENSITY DECREASED
     Dosage: 70 MG, EVERY WEEK
     Route: 065
  7. MOMETASONE FUROATE MONOHYDRATE. [Suspect]
     Active Substance: MOMETASONE FUROATE MONOHYDRATE
     Indication: ASTHMA
     Dosage: 50 ?G, 2 DOSES DIE OR TWICE DAILY

REACTIONS (3)
  - Fibula fracture [Recovered/Resolved]
  - Arthralgia [Recovered/Resolved]
  - Stress fracture [Recovered/Resolved]

NARRATIVE: CASE EVENT DATE: 201401
